FAERS Safety Report 18620263 (Version 3)
Quarter: 2021Q1

REPORT INFORMATION
  Report Type: Report from Study
  Country: US (occurrence: US)
  Receive Date: 20201215
  Receipt Date: 20210201
  Transmission Date: 20210419
  Serious: Yes (Other)
  Sender: FDA-Public Use
  Company Number: NVSC2020US331639

PATIENT
  Sex: Female
  Weight: 19 kg

DRUGS (1)
  1. ILARIS [Suspect]
     Active Substance: CANAKINUMAB
     Indication: CRYOPYRIN ASSOCIATED PERIODIC SYNDROME
     Dosage: 150 MG, EVERY 4 WEEKS. DOSE CHANGED TO EVERY 3 WEEKS.
     Route: 058

REACTIONS (3)
  - Condition aggravated [Unknown]
  - Inappropriate schedule of product administration [Unknown]
  - Cryopyrin associated periodic syndrome [Unknown]
